FAERS Safety Report 7350440-6 (Version None)
Quarter: 2011Q1

REPORT INFORMATION
  Report Type: 
  Country: None (occurrence: None)
  Receive Date: 20110314
  Receipt Date: 20110307
  Transmission Date: 20110831
  Serious: Yes (Other)
  Sender: FDA-Public Use
  Company Number: JP-PFIZER INC-2011048879

PATIENT
  Age: 75 Year
  Sex: Male

DRUGS (2)
  1. ELASPOL [Concomitant]
     Dosage: UNK
     Dates: start: 20110201
  2. VFEND [Suspect]
     Indication: ASPERGILLUS TEST POSITIVE
     Dosage: UNK
     Dates: start: 20110201

REACTIONS (1)
  - RHABDOMYOLYSIS [None]
